FAERS Safety Report 24136099 (Version 1)
Quarter: 2024Q3

REPORT INFORMATION
  Report Type: Spontaneous
  Country: JP (occurrence: None)
  Receive Date: 20240725
  Receipt Date: 20240725
  Transmission Date: 20241017
  Serious: Yes (Other)
  Sender: ORION
  Company Number: JP-Orion Corporation ORION PHARMA-ENTC2024-0088

PATIENT
  Age: 8 Decade
  Sex: Female

DRUGS (10)
  1. STALEVO [Suspect]
     Active Substance: CARBIDOPA\ENTACAPONE\LEVODOPA
     Indication: Parkinson^s disease
     Dosage: STRENGTH: LEVODOPA 100MG, CARBIDOPA 10.8MG, ENTACAPONE 100MG
  2. STALEVO [Suspect]
     Active Substance: CARBIDOPA\ENTACAPONE\LEVODOPA
     Dosage: DOSE INCREASED
  3. CARBIDOPA\LEVODOPA [Suspect]
     Active Substance: CARBIDOPA\LEVODOPA
     Indication: Parkinson^s disease
     Dosage: STRENGTH: LEVODOPA 50MG, CARBIDOPA 5MG
  4. CARBIDOPA\LEVODOPA [Suspect]
     Active Substance: CARBIDOPA\LEVODOPA
     Dosage: STRENGTH: LEVODOPA 100MG, CARBIDOPA 10MG
  5. NEUPRO [Suspect]
     Active Substance: ROTIGOTINE
     Indication: Parkinson^s disease
     Dosage: STRENGTH: 4.5 MG
  6. NEUPRO [Suspect]
     Active Substance: ROTIGOTINE
     Dosage: STRENGTH: 4.5 MG. DOSE INCREASED
  7. LANSOPRAZOLE [Suspect]
     Active Substance: LANSOPRAZOLE
     Indication: Product used for unknown indication
     Dosage: STRENGTH: 15 MG
  8. TRIHEXYPHENIDYL [Concomitant]
     Active Substance: TRIHEXYPHENIDYL
     Dosage: STRENGTH: 2 MG
  9. ZONISAMIDE [Concomitant]
     Active Substance: ZONISAMIDE
     Dosage: STRENGTH: 50 MG
  10. AZILECT [Concomitant]
     Active Substance: RASAGILINE MESYLATE
     Dosage: STRENGTH: 0.5 MG

REACTIONS (5)
  - Parkinson^s disease [Unknown]
  - Therapeutic product effect incomplete [Unknown]
  - Product prescribing error [Unknown]
  - Product administration error [Unknown]
  - Abdominal discomfort [Unknown]
